FAERS Safety Report 24714108 (Version 1)
Quarter: 2024Q4

REPORT INFORMATION
  Report Type: Spontaneous
  Country: US (occurrence: US)
  Receive Date: 20241209
  Receipt Date: 20241209
  Transmission Date: 20250114
  Serious: Yes (Other)
  Sender: REGENERON
  Company Number: US-REGENERON PHARMACEUTICALS, INC.-2024-119644

PATIENT
  Sex: Male

DRUGS (2)
  1. EYLEA [Suspect]
     Active Substance: AFLIBERCEPT
     Indication: Diabetic retinopathy
     Dosage: UNK INTO LEFT EYE (FORMULATION: UNKNOWN)
     Route: 031
     Dates: start: 2024, end: 2024
  2. EYLEA [Suspect]
     Active Substance: AFLIBERCEPT
     Indication: Neovascular age-related macular degeneration

REACTIONS (5)
  - Cataract [Unknown]
  - Eye haemorrhage [Unknown]
  - Injection site discomfort [Unknown]
  - Vision blurred [Unknown]
  - Eye oedema [Unknown]

NARRATIVE: CASE EVENT DATE: 20240101
